FAERS Safety Report 5449524-9 (Version None)
Quarter: 2007Q3

REPORT INFORMATION
  Report Type: 
  Country: None (occurrence: None)
  Receive Date: 20070907
  Receipt Date: 20070823
  Transmission Date: 20080115
  Serious: Yes (Other)
  Sender: FDA-Public Use
  Company Number: 8026033

PATIENT

DRUGS (1)
  1. KEPPRA [Suspect]

REACTIONS (1)
  - IMMUNODEFICIENCY [None]
